FAERS Safety Report 4490996-4 (Version None)
Quarter: 2004Q4

REPORT INFORMATION
  Report Type: 
  Country: None (occurrence: None)
  Receive Date: 20041027
  Receipt Date: 20041012
  Transmission Date: 20050328
  Serious: Yes (Hospitalization)
  Sender: FDA-Public Use
  Company Number: ST-2004-008078

PATIENT
  Age: 77 Year
  Sex: Male
  Weight: 68.3 kg

DRUGS (12)
  1. OLMETEC [Suspect]
     Indication: HYPERTENSION
     Dosage: 20 MG QD PO
     Route: 048
     Dates: start: 20040723, end: 20040830
  2. ASPENON [Concomitant]
  3. SUNRYTHM [Concomitant]
  4. PONTAL [Concomitant]
  5. TRANSAMIN [Concomitant]
  6. SELBEX [Concomitant]
  7. NAUZELIN [Concomitant]
  8. MUCOSTA [Concomitant]
  9. BIOFERMIN [Concomitant]
  10. ASVERIN [Concomitant]
  11. MUCODYNE [Concomitant]
  12. NORVASC [Concomitant]

REACTIONS (2)
  - CHOLANGITIS [None]
  - HEPATITIS CHOLESTATIC [None]
